FAERS Safety Report 12417181 (Version 1)
Quarter: 2016Q2

REPORT INFORMATION
  Report Type: Spontaneous
  Country: IL (occurrence: IL)
  Receive Date: 20160530
  Receipt Date: 20160530
  Transmission Date: 20160815
  Serious: Yes (Other)
  Sender: FDA-Public Use
  Company Number: IL-JNJFOC-20141109845

PATIENT
  Sex: Female

DRUGS (4)
  1. TRAMADEX [Concomitant]
     Active Substance: TRAMADOL
     Route: 065
  2. OPTALGIN [Concomitant]
     Active Substance: METAMIZOLE
     Route: 065
  3. SIMPONI [Suspect]
     Active Substance: GOLIMUMAB
     Indication: ANKYLOSING SPONDYLITIS
     Route: 058
     Dates: start: 20120828
  4. SIMPONI [Suspect]
     Active Substance: GOLIMUMAB
     Indication: ANKYLOSING SPONDYLITIS
     Route: 058

REACTIONS (12)
  - C-reactive protein increased [Unknown]
  - Asthenia [Unknown]
  - Pain [Not Recovered/Not Resolved]
  - Drug ineffective [Unknown]
  - Red blood cell sedimentation rate increased [Unknown]
  - Chills [Unknown]
  - Fatigue [Unknown]
  - Malaise [Unknown]
  - Loss of control of legs [Unknown]
  - Drug administration error [Unknown]
  - Back pain [Not Recovered/Not Resolved]
  - Weight increased [Recovering/Resolving]

NARRATIVE: CASE EVENT DATE: 2012
